FAERS Safety Report 24213468 (Version 2)
Quarter: 2024Q3

REPORT INFORMATION
  Report Type: Report from Study
  Country: IN (occurrence: IN)
  Receive Date: 20240815
  Receipt Date: 20240925
  Transmission Date: 20241016
  Serious: Yes (Hospitalization)
  Sender: CIPLA
  Company Number: IN-CIPLA LTD.-2024IN08517

PATIENT

DRUGS (6)
  1. SPIRONOLACTONE\TORSEMIDE [Suspect]
     Active Substance: SPIRONOLACTONE\TORSEMIDE
     Indication: Product used for unknown indication
     Dosage: DOSE USED: 1, FREQUENCY: 1 (STRENGTH 20 MG)
     Route: 048
  2. WARFARIN SODIUM [Suspect]
     Active Substance: WARFARIN SODIUM
     Indication: Product used for unknown indication
     Dosage: DOSE USED: 1, FREQUENCY: 1
     Route: 048
  3. DEPLATT-A [Concomitant]
     Indication: Product used for unknown indication
     Dosage: UNK (STRENGTH 75 MG)
     Route: 065
  4. ACETAMINOPHEN [Concomitant]
     Active Substance: ACETAMINOPHEN
     Indication: Product used for unknown indication
     Dosage: UNK
     Route: 065
  5. MET XL [Concomitant]
     Indication: Product used for unknown indication
     Dosage: UNK
     Route: 065
  6. AMIODARONE HYDROCHLORIDE [Concomitant]
     Active Substance: AMIODARONE HYDROCHLORIDE
     Indication: Product used for unknown indication
     Dosage: UNK
     Route: 065

REACTIONS (2)
  - Vascular compression [Not Recovered/Not Resolved]
  - Hypoaesthesia [Recovering/Resolving]

NARRATIVE: CASE EVENT DATE: 20240501
